FAERS Safety Report 6284411-8 (Version None)
Quarter: 2009Q3

REPORT INFORMATION
  Report Type: 
  Country: None (occurrence: None)
  Receive Date: 20090727
  Receipt Date: 20090717
  Transmission Date: 20100115
  Serious: Yes (Hospitalization)
  Sender: FDA-Public Use
  Company Number: CH-ROCHE-644676

PATIENT
  Age: 19 Year
  Sex: Male

DRUGS (2)
  1. VALIUM [Suspect]
     Indication: DRUG USE FOR UNKNOWN INDICATION
     Route: 048
     Dates: start: 20090617, end: 20090620
  2. VOLTAREN [Concomitant]
     Route: 048
     Dates: start: 20090617

REACTIONS (1)
  - SYNCOPE [None]
